FAERS Safety Report 24663861 (Version 1)
Quarter: 2024Q4

REPORT INFORMATION
  Report Type: Spontaneous
  Country: GB (occurrence: GB)
  Receive Date: 20241126
  Receipt Date: 20241126
  Transmission Date: 20250115
  Serious: Yes (Other)
  Sender: JUBILANT
  Company Number: GB-JUBILANT PHARMA LTD-2018GB001418

PATIENT
  Age: 32 Year
  Sex: Female

DRUGS (68)
  1. OLANZAPINE [Suspect]
     Active Substance: OLANZAPINE
     Indication: Hallucination, auditory
     Dosage: UNK, UNK, (DOSAGE FORM: UNKNOWN)
     Route: 048
  2. OLANZAPINE [Suspect]
     Active Substance: OLANZAPINE
     Indication: Drug ineffective
     Dosage: UNK, UNK
     Route: 065
  3. OLANZAPINE [Suspect]
     Active Substance: OLANZAPINE
     Indication: Schizophrenia
     Dosage: UNK, UNK
     Route: 065
  4. OLANZAPINE [Suspect]
     Active Substance: OLANZAPINE
     Dosage: UNK,  UNK
     Route: 065
  5. OLANZAPINE [Suspect]
     Active Substance: OLANZAPINE
     Dosage: UNK,  UNK
     Route: 048
  6. HALDOL DECANOATE [Suspect]
     Active Substance: HALOPERIDOL DECANOATE
     Indication: Hallucination, auditory
     Dosage: UNK,  UNK (DOSAGE FORM: UNSPECIFIED )
     Route: 065
     Dates: start: 2006, end: 20171205
  7. HALDOL DECANOATE [Suspect]
     Active Substance: HALOPERIDOL DECANOATE
     Indication: Schizophrenia
     Dosage: UNK,  UNK
     Dates: start: 2016, end: 20171205
  8. HALDOL DECANOATE [Suspect]
     Active Substance: HALOPERIDOL DECANOATE
     Indication: Drug ineffective
     Dosage: UNK, (UNK, DOSAGE FORM: UNSPECIFIED)
     Route: 065
     Dates: start: 2019
  9. HALDOL DECANOATE [Suspect]
     Active Substance: HALOPERIDOL DECANOATE
     Indication: Product used for unknown indication
     Dosage: UNK,  UNK
     Route: 065
     Dates: start: 2019
  10. ZUCLOPENTHIXOL [Suspect]
     Active Substance: ZUCLOPENTHIXOL
     Indication: Hallucination, auditory
     Dosage: UNK, UNK, (DOSAGE FORM: UNKNOWN)
     Route: 065
     Dates: start: 2006, end: 20171205
  11. ZUCLOPENTHIXOL [Suspect]
     Active Substance: ZUCLOPENTHIXOL
     Indication: Drug ineffective
     Dosage: UNK,  UNK
     Route: 065
  12. ZUCLOPENTHIXOL [Suspect]
     Active Substance: ZUCLOPENTHIXOL
     Indication: Schizophrenia
     Dosage: UNK,  UNK
     Route: 065
  13. AMISULPRIDE [Suspect]
     Active Substance: AMISULPRIDE
     Indication: Hallucination, auditory
     Dosage: UNK, UNK, (DOSAGE FORM: UNKNOWN)
     Route: 048
     Dates: start: 20050215
  14. AMISULPRIDE [Suspect]
     Active Substance: AMISULPRIDE
     Dosage: UNK, UNK
     Route: 048
  15. AMISULPRIDE [Suspect]
     Active Substance: AMISULPRIDE
     Dosage: UNK, UNK
     Route: 048
  16. AMISULPRIDE [Suspect]
     Active Substance: AMISULPRIDE
     Dosage: UNK, UNK
     Route: 048
  17. RISPERIDONE [Suspect]
     Active Substance: RISPERIDONE
     Indication: Hallucination, auditory
     Dosage: UNK, UNK (DOSAGE FORM: UNSPECIFIED)
     Route: 065
     Dates: start: 2006, end: 20171205
  18. RISPERIDONE [Suspect]
     Active Substance: RISPERIDONE
     Indication: Drug ineffective
     Dosage: UNK, UNK
     Route: 065
  19. RISPERIDONE [Suspect]
     Active Substance: RISPERIDONE
     Indication: Schizophrenia
     Dosage: UNK, UNK
     Route: 065
  20. RISPERIDONE [Suspect]
     Active Substance: RISPERIDONE
     Indication: Product used for unknown indication
     Dosage: UNK, UNK
     Route: 065
  21. RISPERIDONE [Suspect]
     Active Substance: RISPERIDONE
     Indication: Schizophrenia
     Dosage: UNK, UNK
     Route: 065
  22. RISPERIDONE [Suspect]
     Active Substance: RISPERIDONE
     Dosage: UNK
     Dates: start: 2006, end: 20171205
  23. ARIPIPRAZOLE [Suspect]
     Active Substance: ARIPIPRAZOLE
     Indication: Product used for unknown indication
     Dosage: UNK,  UNK (EVERY) UNK (UNK, (EVERY)); ;
     Route: 065
     Dates: start: 2019
  24. ARIPIPRAZOLE [Suspect]
     Active Substance: ARIPIPRAZOLE
     Indication: Hallucination, auditory
  25. CLOZARIL [Suspect]
     Active Substance: CLOZAPINE
     Indication: Schizophrenia
     Dosage: UNK, ONCE PER DAY
     Route: 048
     Dates: start: 20050215, end: 20171205
  26. CLOZARIL [Suspect]
     Active Substance: CLOZAPINE
     Indication: Schizoaffective disorder
     Dosage: UNK,ONCE PER DAY
     Route: 048
     Dates: start: 20180205, end: 20191205
  27. CLOZARIL [Suspect]
     Active Substance: CLOZAPINE
     Indication: Hallucination, auditory
     Dosage: UNK,  UNK
     Route: 048
     Dates: start: 20050215, end: 20071205
  28. CLOZARIL [Suspect]
     Active Substance: CLOZAPINE
     Dosage: UNK, ONCE PER DAY
     Route: 048
     Dates: start: 20050215, end: 20171205
  29. CLOZARIL [Suspect]
     Active Substance: CLOZAPINE
     Dosage: UNK,  UNK
     Route: 048
     Dates: start: 20050215
  30. CLOZARIL [Suspect]
     Active Substance: CLOZAPINE
     Dosage: UNK,  UNK
     Route: 048
     Dates: start: 2006, end: 20171205
  31. CLOZARIL [Suspect]
     Active Substance: CLOZAPINE
     Dosage: UNK,  UNK
     Route: 048
     Dates: start: 2006, end: 20171205
  32. CLOZARIL [Suspect]
     Active Substance: CLOZAPINE
     Dosage: UNK,  UNK
     Route: 048
     Dates: start: 20150215, end: 20171205
  33. CLOZARIL [Suspect]
     Active Substance: CLOZAPINE
     Dosage: UNK,  UNK (EVERY)
     Route: 048
     Dates: start: 20181205, end: 20191205
  34. CLOZARIL [Suspect]
     Active Substance: CLOZAPINE
     Dosage: UNK, ONCE PER DAY
     Route: 048
     Dates: start: 201909
  35. CLOZARIL [Suspect]
     Active Substance: CLOZAPINE
     Dosage: UNK,  UNK
     Route: 048
     Dates: start: 20180205, end: 2019
  36. CLOZARIL [Suspect]
     Active Substance: CLOZAPINE
     Dosage: UNK,  UNK
     Route: 048
     Dates: start: 20180205, end: 2019
  37. CLOZARIL [Suspect]
     Active Substance: CLOZAPINE
     Dosage: UNK, ONCE PER DAY
     Route: 048
     Dates: start: 2019
  38. CLOZARIL [Suspect]
     Active Substance: CLOZAPINE
     Dosage: UNK,  UNK
     Route: 048
     Dates: start: 201909
  39. CLOZARIL [Suspect]
     Active Substance: CLOZAPINE
     Dosage: UNK,  UNK
     Route: 048
     Dates: start: 20050215, end: 20171205
  40. CLOZARIL [Suspect]
     Active Substance: CLOZAPINE
     Dosage: UNK,  UNK
  41. CLOZARIL [Suspect]
     Active Substance: CLOZAPINE
     Dosage: UNK,   UNK
     Route: 048
     Dates: start: 20180205
  42. CLOZARIL [Suspect]
     Active Substance: CLOZAPINE
     Dosage: UNK
  43. CLOZARIL [Suspect]
     Active Substance: CLOZAPINE
     Dosage: UNK
     Route: 048
     Dates: start: 20150215
  44. CLOZARIL [Suspect]
     Active Substance: CLOZAPINE
     Dosage: UNK
  45. CLOZARIL [Suspect]
     Active Substance: CLOZAPINE
     Dosage: UNK
  46. CLOZARIL [Suspect]
     Active Substance: CLOZAPINE
     Dosage: UNK
  47. QUETIAPINE FUMARATE [Suspect]
     Active Substance: QUETIAPINE FUMARATE
     Indication: Product used for unknown indication
     Dosage: UNK,  UNK (EVERY)
     Route: 048
  48. QUETIAPINE FUMARATE [Suspect]
     Active Substance: QUETIAPINE FUMARATE
     Dosage: UNK,  UNK
     Route: 048
  49. QUETIAPINE FUMARATE [Suspect]
     Active Substance: QUETIAPINE FUMARATE
     Dosage: UNK,  UNK
     Route: 048
  50. RISPERDAL [Suspect]
     Active Substance: RISPERIDONE
     Indication: Hallucination, auditory
     Dosage: UNK,  UNK (EVERY)
     Route: 065
     Dates: start: 2006, end: 20171205
  51. RISPERDAL [Suspect]
     Active Substance: RISPERIDONE
     Indication: Schizophrenia
     Dosage: UNK
  52. RISPERDAL [Suspect]
     Active Substance: RISPERIDONE
     Indication: Drug ineffective
  53. HALOPERIDOL [Suspect]
     Active Substance: HALOPERIDOL
     Indication: Product used for unknown indication
     Dosage: UNK,  UNK (DOSAGE FORM: UNSPECIFIED)
     Route: 065
     Dates: start: 2019
  54. HALOPERIDOL [Suspect]
     Active Substance: HALOPERIDOL
     Indication: Hallucination, auditory
     Dosage: UNK,  UNK
     Route: 065
     Dates: start: 2019
  55. HALOPERIDOL [Suspect]
     Active Substance: HALOPERIDOL
     Indication: Schizophrenia
     Dosage: UNK,  UNK
  56. HALOPERIDOL [Suspect]
     Active Substance: HALOPERIDOL
     Dosage: UNK,  UNK
  57. HALOPERIDOL [Suspect]
     Active Substance: HALOPERIDOL
     Dosage: UNK,  UNK
  58. QUETIAPINE [Suspect]
     Active Substance: QUETIAPINE
     Indication: Product used for unknown indication
     Dosage: UNK,  UNK, (EVERY)
     Route: 048
  59. QUETIAPINE [Suspect]
     Active Substance: QUETIAPINE
     Dosage: UNK,  UNK
     Route: 050
  60. QUETIAPINE [Suspect]
     Active Substance: QUETIAPINE
     Dosage: UNK,  UNK
     Route: 050
  61. AMISULPRIDE [Suspect]
     Active Substance: AMISULPRIDE
     Indication: Hallucination, auditory
     Dosage: UNK,  UNK
     Route: 048
     Dates: start: 20050215
  62. ZUCLOPENTHIXOL HYDROCHLORIDE [Suspect]
     Active Substance: ZUCLOPENTHIXOL HYDROCHLORIDE
     Indication: Hallucination, auditory
     Dosage: UNK,  UNK
     Route: 065
     Dates: start: 2006, end: 20171205
  63. ZUCLOPENTHIXOL HYDROCHLORIDE [Suspect]
     Active Substance: ZUCLOPENTHIXOL HYDROCHLORIDE
     Indication: Drug ineffective
  64. ZUCLOPENTHIXOL HYDROCHLORIDE [Suspect]
     Active Substance: ZUCLOPENTHIXOL HYDROCHLORIDE
     Indication: Schizophrenia
  65. ABILIFY [Suspect]
     Active Substance: ARIPIPRAZOLE
     Indication: Product used for unknown indication
     Dosage: UNK,  UNK
     Dates: start: 2019
  66. ABILIFY [Suspect]
     Active Substance: ARIPIPRAZOLE
     Indication: Hallucination, auditory
  67. ARIPIPRAZOLE [Suspect]
     Active Substance: ARIPIPRAZOLE
     Indication: Hallucination, auditory
     Dosage: UNK (UNK, (EVERY))
     Dates: start: 2019
  68. ARIPIPRAZOLE [Suspect]
     Active Substance: ARIPIPRAZOLE
     Dosage: UNK,  UNK

REACTIONS (22)
  - Suicidal ideation [Unknown]
  - Drug ineffective [Unknown]
  - Schizophrenia [Not Recovered/Not Resolved]
  - Schizophrenia [Not Recovered/Not Resolved]
  - Drug ineffective [Unknown]
  - Malaise [Not Recovered/Not Resolved]
  - Neutropenia [Recovered/Resolved]
  - Leukopenia [Recovered/Resolved]
  - Eosinophil count decreased [Recovered/Resolved]
  - Product use in unapproved indication [Unknown]
  - Refusal of examination [Unknown]
  - Neutropenia [Recovered/Resolved]
  - Intentional product misuse [Unknown]
  - Medication error [Unknown]
  - Mental impairment [Not Recovered/Not Resolved]
  - Eating disorder [Unknown]
  - Drug abuse [Unknown]
  - Malaise [Not Recovered/Not Resolved]
  - Schizophrenia [Not Recovered/Not Resolved]
  - Product use in unapproved indication [Unknown]
  - Food poisoning [Unknown]
  - Gastroenteritis [Unknown]

NARRATIVE: CASE EVENT DATE: 20170901
